FAERS Safety Report 15250356 (Version 1)
Quarter: 2018Q3

REPORT INFORMATION
  Report Type: Spontaneous
  Country: US (occurrence: US)
  Receive Date: 20180716
  Receipt Date: 20180716
  Transmission Date: 20181010
  Serious: No
  Sender: FDA-Public Use
  Company Number: None

PATIENT
  Age: 56 Year
  Sex: Female

DRUGS (1)
  1. PROGESTERONE. [Suspect]
     Active Substance: PROGESTERONE
     Route: 048
     Dates: start: 20180714, end: 20180715

REACTIONS (5)
  - Swelling face [None]
  - Hypersensitivity [None]
  - Sensory loss [None]
  - Cold sweat [None]
  - Muscle spasms [None]

NARRATIVE: CASE EVENT DATE: 20180716
